FAERS Safety Report 8908429 (Version 1)
Quarter: 2012Q4

REPORT INFORMATION
  Report Type: 
  Country: US (occurrence: US)
  Receive Date: 20121114
  Receipt Date: 20121114
  Transmission Date: 20130627
  Serious: No
  Sender: FDA-Public Use
  Company Number: US-PFIZER INC-2012283668

PATIENT
  Sex: Female

DRUGS (2)
  1. EFFEXOR XR [Suspect]
     Indication: MENOPAUSAL SYMPTOMS
     Dosage: 37.5 mg, UNK
     Route: 048
  2. EFFEXOR XR [Suspect]
     Indication: HOT FLASHES

REACTIONS (3)
  - Off label use [Unknown]
  - Pollakiuria [Unknown]
  - Musculoskeletal pain [Unknown]
